FAERS Safety Report 4937124-6 (Version None)
Quarter: 2006Q1

REPORT INFORMATION
  Report Type: 
  Country: None (occurrence: None)
  Receive Date: 20060302
  Receipt Date: 20060227
  Transmission Date: 20060701
  Serious: Yes (Disabling)
  Sender: FDA-Public Use
  Company Number: S06-FRA-00792-01

PATIENT
  Sex: Male

DRUGS (1)
  1. MEMANTINE HCL [Suspect]
     Indication: DEMENTIA ALZHEIMER'S TYPE

REACTIONS (4)
  - ECZEMA NUMMULAR [None]
  - PRURITUS [None]
  - SCRATCH [None]
  - SKIN HAEMORRHAGE [None]
